FAERS Safety Report 4711736-7 (Version None)
Quarter: 2005Q2

REPORT INFORMATION
  Report Type: 
  Country: None (occurrence: None)
  Receive Date: 20050629
  Receipt Date: 20050425
  Transmission Date: 20051028
  Serious: No
  Sender: FDA-Public Use
  Company Number: 05P-163-0298381-00

PATIENT
  Age: 61 Year
  Sex: Female
  Weight: 4.2293 kg

DRUGS (5)
  1. HUMIRA [Suspect]
     Indication: RHEUMATOID ARTHRITIS
     Dosage: 40 MG, 1 IN 2 WK, SUBCUTANEOUS
     Route: 058
     Dates: start: 20050131
  2. METHOTREXATE SODIUM [Concomitant]
  3. LOVASTATIN [Concomitant]
  4. FOLIC ACID [Concomitant]
  5. LEUCOVORIN CALCIUM [Concomitant]

REACTIONS (11)
  - ABNORMAL DREAMS [None]
  - AMNESIA [None]
  - ERYTHEMA [None]
  - HAEMATOCRIT INCREASED [None]
  - HAEMOGLOBIN INCREASED [None]
  - INCREASED APPETITE [None]
  - IRRITABILITY [None]
  - LYMPHADENOPATHY [None]
  - OCULAR HYPERAEMIA [None]
  - PHARYNGOLARYNGEAL PAIN [None]
  - WEIGHT INCREASED [None]
